FAERS Safety Report 14169490 (Version 1)
Quarter: 2017Q4

REPORT INFORMATION
  Report Type: Spontaneous
  Country: US (occurrence: US)
  Receive Date: 20171107
  Receipt Date: 20171107
  Transmission Date: 20180321
  Serious: No
  Sender: FDA-Public Use
  Company Number: US-TARO-2017TAR00186

PATIENT
  Age: 58 Year
  Sex: Female

DRUGS (1)
  1. ALCLOMETASONE DIPROPIONATE CREAM 0.05% [Suspect]
     Active Substance: ALCLOMETASONE DIPROPIONATE
     Indication: HYPERSENSITIVITY
     Dosage: UNK, 2X/DAY
     Route: 061
     Dates: start: 20170313, end: 20170317

REACTIONS (3)
  - Accidental exposure to product [Unknown]
  - Dry eye [Not Recovered/Not Resolved]
  - Eye irritation [Not Recovered/Not Resolved]

NARRATIVE: CASE EVENT DATE: 201703
